FAERS Safety Report 10129901 (Version 1)
Quarter: 2014Q2

REPORT INFORMATION
  Report Type: Report from Study
  Country: AU (occurrence: AU)
  Receive Date: 20140428
  Receipt Date: 20140428
  Transmission Date: 20141212
  Serious: Yes (Other)
  Sender: FDA-Public Use
  Company Number: PHHY2014AU050206

PATIENT
  Age: 79 Year
  Sex: Female

DRUGS (18)
  1. ACLASTA [Suspect]
     Indication: OSTEOPOROSIS
     Dosage: 5 MG, UNK
     Route: 042
     Dates: start: 20110820
  2. ACLASTA [Suspect]
     Dosage: 5 MG, UNK
     Route: 042
     Dates: start: 20130607
  3. CALVID [Concomitant]
     Dosage: 1 SACHET/DAY, STIR IN WATER AND DRINK, IN EVENING
     Route: 048
  4. EFEXOR XR [Concomitant]
     Dosage: 1 DF, IN MORNING
  5. NEO B12 [Concomitant]
     Dosage: 1 DF, EVERY 3 MONTHS
  6. NEO-MERCAZOLE [Concomitant]
     Dosage: UNK UKN, ONCE DAILY
  7. PANAMAX [Concomitant]
     Dosage: 1 TO 2 TABLETS EVERY 4 TO 6 HOURS
  8. RANI 2 [Concomitant]
     Dosage: 1 DF, BID
  9. RIVAROXABAN [Concomitant]
     Dosage: UNK UKN, ONCE DAILY
     Route: 048
  10. SERETIDE MDI [Concomitant]
     Dosage: 2 DF, BID
     Route: 055
  11. SIGMAXIN [Concomitant]
     Dosage: 0.5 DF, HALF DAILY
  12. SOLAVERT [Concomitant]
     Dosage: 0.5 DF, BID
  13. SOLONE [Concomitant]
     Dosage: 1 DF, IN THE MORNING
  14. SOMAC [Concomitant]
     Indication: CHEST PAIN
     Dosage: UNK UKN, ONCE DAILY
  15. SOMAC [Concomitant]
     Indication: PEPTIC ULCER
     Dosage: 40 UG, QD
  16. SPIRACTIN//PIMECLONE HYDROCHLORIDE [Concomitant]
     Dosage: 1 DF, BID
  17. TEMAZE [Concomitant]
     Dosage: 1 DF, AT NIGHT
  18. UREX [Concomitant]
     Dosage: 1 DF, QD

REACTIONS (8)
  - Aplastic anaemia [Not Recovered/Not Resolved]
  - Angina pectoris [Not Recovered/Not Resolved]
  - Chest pain [Not Recovered/Not Resolved]
  - Cardiac murmur [Not Recovered/Not Resolved]
  - Atrial fibrillation [Not Recovered/Not Resolved]
  - Peptic ulcer [Not Recovered/Not Resolved]
  - Muscle tightness [Not Recovered/Not Resolved]
  - Bone disorder [Not Recovered/Not Resolved]
